FAERS Safety Report 8869940 (Version 1)
Quarter: 2012Q4

REPORT INFORMATION
  Report Type: 
  Country: US (occurrence: US)
  Receive Date: 20121028
  Receipt Date: 20121028
  Transmission Date: 20130627
  Serious: No
  Sender: FDA-Public Use
  Company Number: US-009507513-1210USA001898

PATIENT
  Age: 45 Year
  Sex: Female

DRUGS (3)
  1. SAPHRIS [Suspect]
     Indication: BIPOLAR DISORDER
     Dosage: 10 mg,/once at night
     Route: 060
     Dates: start: 201201
  2. KLONOPIN [Concomitant]
  3. EFFEXOR [Concomitant]

REACTIONS (1)
  - Hunger [Not Recovered/Not Resolved]
